FAERS Safety Report 7096942-1 (Version None)
Quarter: 2010Q4

REPORT INFORMATION
  Report Type: 
  Country: None (occurrence: None)
  Receive Date: 20101111
  Receipt Date: 20100308
  Transmission Date: 20110411
  Serious: No
  Sender: FDA-Public Use
  Company Number: US-KINGPHARMUSA00001-K201000284

PATIENT
  Age: 39 Year
  Sex: Female
  Weight: 47.619 kg

DRUGS (4)
  1. FLECTOR [Suspect]
     Indication: BACK PAIN
     Dosage: 1 PATCH, EVERY 12 HOURS
     Route: 061
     Dates: start: 20100301, end: 20100303
  2. FLECTOR [Suspect]
     Indication: MUSCLE STRAIN
  3. FLEXERIL [Concomitant]
     Indication: BACK PAIN
     Dosage: UNK
  4. FLEXERIL [Concomitant]
     Indication: MUSCLE STRAIN

REACTIONS (3)
  - OEDEMA PERIPHERAL [None]
  - PAIN IN EXTREMITY [None]
  - TENDERNESS [None]
